FAERS Safety Report 4611274-6 (Version None)
Quarter: 2005Q2

REPORT INFORMATION
  Report Type: 
  Country: None (occurrence: None)
  Receive Date: 20050311
  Receipt Date: 20041201
  Transmission Date: 20051028
  Serious: No
  Sender: FDA-Public Use
  Company Number: 2004-BP-13673BP

PATIENT
  Age: 69 Year
  Sex: Female

DRUGS (10)
  1. SPIRIVA [Suspect]
     Indication: CHRONIC OBSTRUCTIVE PULMONARY DISEASE
     Dosage: 18 MCG (18 MCG, 1 IN 1 D), IH
     Route: 055
     Dates: start: 20040901
  2. CELEBREX [Suspect]
     Indication: ARTHRITIS
     Dosage: (200 MG), PO
     Route: 048
  3. VIOXX [Concomitant]
  4. ISOSORBIDE MONO TAB [Concomitant]
  5. PRAVACHOL [Concomitant]
  6. AVALIDE (KARVEA HCT) [Concomitant]
  7. COREG [Concomitant]
  8. ASPIRIN [Concomitant]
  9. ZETIA [Concomitant]
  10. MULTIVITAMIN [Concomitant]

REACTIONS (7)
  - DIARRHOEA [None]
  - DYSPNOEA [None]
  - ERYTHEMA [None]
  - FATIGUE [None]
  - FLUSHING [None]
  - PAIN IN EXTREMITY [None]
  - RASH [None]
